FAERS Safety Report 8484950-5 (Version None)
Quarter: 2012Q3

REPORT INFORMATION
  Report Type: 
  Country: None (occurrence: None)
  Receive Date: 20120703
  Receipt Date: 20120625
  Transmission Date: 20120928
  Serious: Yes (Other)
  Sender: FDA-Public Use
  Company Number: BR-PFIZER INC-2012147155

PATIENT
  Age: 80 Year
  Sex: Female

DRUGS (1)
  1. TOLTERODINE TARTRATE [Suspect]
     Indication: URINARY INCONTINENCE
     Dosage: 4 MG ONE CAPSULE ONCE DAILY
     Route: 048
     Dates: start: 20120615, end: 20120101

REACTIONS (5)
  - DRUG INEFFECTIVE [None]
  - NOCTURIA [None]
  - HEADACHE [None]
  - ABDOMINAL PAIN [None]
  - SYNCOPE [None]
